FAERS Safety Report 14568174 (Version 2)
Quarter: 2018Q2

REPORT INFORMATION
  Report Type: Spontaneous
  Country: US (occurrence: US)
  Receive Date: 20180223
  Receipt Date: 20180508
  Transmission Date: 20180711
  Serious: Yes (Other)
  Sender: FDA-Public Use
  Company Number: US-PFIZER INC-2018070913

PATIENT
  Age: 63 Year
  Sex: Female
  Weight: 49.9 kg

DRUGS (3)
  1. NORCO [Concomitant]
     Active Substance: ACETAMINOPHEN\HYDROCODONE BITARTRATE
     Dosage: 5/325 PRN
  2. PROVERA [Suspect]
     Active Substance: MEDROXYPROGESTERONE ACETATE
     Indication: HORMONE REPLACEMENT THERAPY
     Dosage: ONE TABLET PER DAY FOR THE FIRST 10 DAYS AND THEN I STOP, DON^T BEGIN UNTIL THE FIRST OF NEXT MONTH
     Dates: start: 2014
  3. PREMARIN [Suspect]
     Active Substance: ESTROGENS, CONJUGATED
     Indication: HORMONE REPLACEMENT THERAPY
     Dosage: 1.25 MG, 1X/DAY
     Dates: start: 2014

REACTIONS (10)
  - Gingival bleeding [Unknown]
  - Headache [Unknown]
  - Incorrect dose administered [Unknown]
  - Fatigue [Unknown]
  - Somnolence [Unknown]
  - Loss of personal independence in daily activities [Unknown]
  - Vaginal haemorrhage [Unknown]
  - Migraine [Unknown]
  - Gingival swelling [Unknown]
  - Myalgia [Unknown]

NARRATIVE: CASE EVENT DATE: 20180223
